FAERS Safety Report 5673819-7 (Version None)
Quarter: 2008Q2

REPORT INFORMATION
  Report Type: 
  Country: None (occurrence: None)
  Receive Date: 20080226
  Receipt Date: 20070627
  Transmission Date: 20081010
  Serious: Yes (Other)
  Sender: FDA-Public Use
  Company Number: 504464

PATIENT
  Age: 42 Year
  Sex: Female

DRUGS (1)
  1. ACCUTANE [Suspect]
     Indication: ACNE
     Dosage: ORAL
     Route: 048
     Dates: start: 19950615

REACTIONS (5)
  - ACNE [None]
  - ADVERSE EVENT [None]
  - DEAFNESS [None]
  - DEAFNESS UNILATERAL [None]
  - TINNITUS [None]
